FAERS Safety Report 22593971 (Version 1)
Quarter: 2023Q2

REPORT INFORMATION
  Report Type: Spontaneous
  Country: US (occurrence: US)
  Receive Date: 20230613
  Receipt Date: 20230613
  Transmission Date: 20230722
  Serious: Yes (Other)
  Sender: FDA-Public Use
  Company Number: US-BRISTOL-MYERS SQUIBB COMPANY-2023-082388

PATIENT
  Age: 84 Year
  Sex: Male

DRUGS (2)
  1. POMALYST [Suspect]
     Active Substance: POMALIDOMIDE
     Indication: Plasma cell myeloma
     Dosage: TAKE 1 CAPSULE BY MOUTH EVERY OTHER DAY FOR 21 DAYS, FOLLOWED BY 7 DAYS OFF FOR A 28 DAY CYCLE
     Route: 048
     Dates: start: 20230104
  2. POMALYST [Suspect]
     Active Substance: POMALIDOMIDE

REACTIONS (2)
  - Transient ischaemic attack [Not Recovered/Not Resolved]
  - Off label use [Unknown]
